FAERS Safety Report 16571465 (Version 1)
Quarter: 2019Q3

REPORT INFORMATION
  Report Type: Spontaneous
  Country: US (occurrence: US)
  Receive Date: 20190715
  Receipt Date: 20190715
  Transmission Date: 20191004
  Serious: Yes (Hospitalization, Other)
  Sender: FDA-Public Use
  Company Number: US-MYLANLABS-2019M1064715

PATIENT
  Age: 17 Year
  Sex: Male

DRUGS (18)
  1. SERTRALINE [Interacting]
     Active Substance: SERTRALINE HYDROCHLORIDE
     Indication: PRODUCT USED FOR UNKNOWN INDICATION
     Route: 065
  2. MEROPENEM. [Suspect]
     Active Substance: MEROPENEM
     Indication: ANTIBIOTIC THERAPY
     Route: 065
  3. MORPHINE [Concomitant]
     Active Substance: MORPHINE
     Indication: ANALGESIC THERAPY
     Route: 065
  4. VANCOMYCIN [Concomitant]
     Active Substance: VANCOMYCIN
     Indication: PRODUCT USED FOR UNKNOWN INDICATION
     Route: 065
  5. DIPHENHYDRAMINE. [Concomitant]
     Active Substance: DIPHENHYDRAMINE
     Indication: ANTIEMETIC SUPPORTIVE CARE
     Route: 065
  6. PIPERACILLIN/TAZOBACTAM [Concomitant]
     Active Substance: PIPERACILLIN SODIUM\TAZOBACTAM SODIUM
     Indication: PRODUCT USED FOR UNKNOWN INDICATION
     Route: 065
  7. VORICONAZOLE. [Interacting]
     Active Substance: VORICONAZOLE
     Indication: EVIDENCE BASED TREATMENT
     Route: 065
  8. METHYLPHENIDATE. [Suspect]
     Active Substance: METHYLPHENIDATE
     Indication: PRODUCT USED FOR UNKNOWN INDICATION
     Route: 065
  9. LORAZEPAM. [Concomitant]
     Active Substance: LORAZEPAM
     Indication: ANTIEMETIC SUPPORTIVE CARE
     Route: 065
  10. DOCUSATE SODIUM. [Concomitant]
     Active Substance: DOCUSATE SODIUM
     Indication: PRODUCT USED FOR UNKNOWN INDICATION
     Route: 065
  11. HYDROCODONE [Concomitant]
     Active Substance: HYDROCODONE
     Indication: ANALGESIC THERAPY
     Route: 065
  12. METHOTREXATE. [Suspect]
     Active Substance: METHOTREXATE
     Indication: BURKITT^S LYMPHOMA STAGE I
     Dosage: UNK
     Route: 037
  13. FAMOTIDINE. [Concomitant]
     Active Substance: FAMOTIDINE
     Indication: PRODUCT USED FOR UNKNOWN INDICATION
     Route: 065
  14. METRONIDAZOLE. [Concomitant]
     Active Substance: METRONIDAZOLE
     Indication: ANTIBIOTIC THERAPY
     Route: 065
  15. METHOTREXATE. [Suspect]
     Active Substance: METHOTREXATE
     Indication: BURKITT^S LYMPHOMA STAGE I
     Dosage: HIGH-DOSE METHOTREXATE
     Route: 065
  16. ONDANSETRON [Suspect]
     Active Substance: ONDANSETRON
     Indication: ANTIEMETIC SUPPORTIVE CARE
     Route: 065
  17. OXYCODONE [Suspect]
     Active Substance: OXYCODONE
     Indication: PRODUCT USED FOR UNKNOWN INDICATION
     Route: 065
  18. SENNA                              /00142201/ [Concomitant]
     Active Substance: SENNA LEAF
     Indication: PRODUCT USED FOR UNKNOWN INDICATION
     Route: 065

REACTIONS (4)
  - Drug interaction [Unknown]
  - Drug level increased [Unknown]
  - Serotonin syndrome [Recovering/Resolving]
  - Toxicity to various agents [Recovering/Resolving]
